FAERS Safety Report 10366047 (Version 1)
Quarter: 2014Q3

REPORT INFORMATION
  Report Type: Spontaneous
  Country: US (occurrence: US)
  Receive Date: 20140806
  Receipt Date: 20140806
  Transmission Date: 20150326
  Serious: Yes (Other)
  Sender: FDA-Public Use
  Company Number: US-ASTRAZENECA-2014SE55119

PATIENT
  Sex: Male

DRUGS (27)
  1. LITHIUM CARBONATE. [Concomitant]
     Active Substance: LITHIUM CARBONATE
     Indication: BIPOLAR DISORDER
     Route: 048
  2. ESTROVEN [Concomitant]
     Route: 048
  3. ZOFRAN [Concomitant]
     Active Substance: ONDANSETRON HYDROCHLORIDE
     Dosage: ONE PILL A DAY AS NEEDED
  4. GABA [Concomitant]
     Active Substance: .GAMMA.-AMINOBUTYRIC ACID
     Dosage: ONE TABLET UPTO THREE TIMES DAILY AS NEEDED
  5. MULTIVITAMINS [Concomitant]
     Active Substance: VITAMINS
     Route: 048
  6. 5 HTP [Concomitant]
     Route: 048
  7. VITAMIN D [Concomitant]
     Active Substance: CHOLECALCIFEROL
     Dosage: 2000 UNITS TABLETS DAILY
  8. LITHIUM CARBONATE. [Concomitant]
     Active Substance: LITHIUM CARBONATE
     Indication: BIPOLAR DISORDER
     Route: 048
  9. SONATA [Concomitant]
     Active Substance: ZALEPLON
  10. OMEPRAZOLE. [Suspect]
     Active Substance: OMEPRAZOLE
     Route: 048
  11. EPS JARRODOPHILUS [Concomitant]
     Dosage: DAILY
  12. FISH OIL [Concomitant]
     Active Substance: FISH OIL
     Dosage: THREE TEA SPOONS (2400MG COMBINED DHA/EPA) DAILY
  13. RANITIDINE HCL [Concomitant]
     Active Substance: RANITIDINE HYDROCHLORIDE
     Indication: DYSPEPSIA
     Route: 048
  14. ADDERALL XR [Concomitant]
     Active Substance: AMPHETAMINE ASPARTATE\AMPHETAMINE SULFATE\DEXTROAMPHETAMINE SACCHARATE\DEXTROAMPHETAMINE SULFATE
  15. DIGESTIVE ENZYMES [Concomitant]
     Active Substance: UNSPECIFIED INGREDIENT
     Dosage: DAILY
  16. L GLUTAMINE [Concomitant]
     Route: 048
  17. CALCIUM-MAGNESIUM-VITAMIN D [Concomitant]
     Route: 048
  18. SEROQUEL [Suspect]
     Active Substance: QUETIAPINE FUMARATE
     Route: 048
  19. L TYROSINE [Concomitant]
     Route: 048
  20. HYDROCODONE ACETAMINOPHEN [Concomitant]
     Active Substance: ACETAMINOPHEN\HYDROCODONE BITARTRATE
     Dosage: 10-325 MG TABLETS. ONE PILL FOUR TIMES A DAY
  21. ATROVENT HFA [Concomitant]
     Active Substance: IPRATROPIUM BROMIDE
     Dosage: 17 MCG/ ACT AERS, 2 PUFFS UPTO FOUR TIMES A DAY
  22. ALPRAZOLAM. [Concomitant]
     Active Substance: ALPRAZOLAM
     Dosage: 1 BY MOUTH THREE TIMES A DAY AS NEEDED
     Route: 048
  23. ZOLOFT [Concomitant]
     Active Substance: SERTRALINE HYDROCHLORIDE
     Dosage: ONE AND HALF PER ORAL TWICE A DAY
     Route: 048
  24. VALERIAN ROOT [Concomitant]
     Active Substance: VALERIAN
     Dosage: ONE CAPSULE UPTO THREE TIMES DAILY
     Route: 048
  25. INOSITOL [Concomitant]
     Active Substance: INOSITOL
     Dosage: ONE TBSP DAILY
  26. ABILIFY [Concomitant]
     Active Substance: ARIPIPRAZOLE
  27. MIRAPEX [Concomitant]
     Active Substance: PRAMIPEXOLE DIHYDROCHLORIDE
     Route: 048

REACTIONS (11)
  - Tremor [Unknown]
  - Self injurious behaviour [Unknown]
  - Anxiety [Unknown]
  - Tic [Unknown]
  - Hypomania [Unknown]
  - Drug hypersensitivity [Unknown]
  - Disturbance in attention [Unknown]
  - Activities of daily living impaired [Unknown]
  - Depression [Unknown]
  - Social avoidant behaviour [Unknown]
  - Fibromyalgia [Unknown]
